FAERS Safety Report 5992263-6 (Version None)
Quarter: 2008Q4

REPORT INFORMATION
  Report Type: 
  Country: None (occurrence: None)
  Receive Date: 20081211
  Receipt Date: 20081128
  Transmission Date: 20090506
  Serious: Yes (Other)
  Sender: FDA-Public Use
  Company Number: GB-VALEANT-2008VX002457

PATIENT
  Age: 42 Year
  Sex: Male

DRUGS (1)
  1. MESTINON [Suspect]
     Indication: DRUG USE FOR UNKNOWN INDICATION
     Route: 048
     Dates: start: 20080701

REACTIONS (2)
  - INSOMNIA [None]
  - PSYCHOTIC DISORDER [None]
